FAERS Safety Report 18192396 (Version 2)
Quarter: 2022Q3

REPORT INFORMATION
  Report Type: Spontaneous
  Country: US (occurrence: US)
  Receive Date: 20200825
  Receipt Date: 20220827
  Transmission Date: 20221026
  Serious: Yes (Other)
  Sender: FDA-Public Use
  Company Number: US-SAARTEMIS-SAC202008200375

PATIENT
  Age: 52 Year
  Sex: Female

DRUGS (1)
  1. ZANTAC [Suspect]
     Active Substance: RANITIDINE HYDROCHLORIDE
     Dosage: 150 MG, FREQUENCY: OTHER
     Dates: start: 200001, end: 201712

REACTIONS (2)
  - Colorectal cancer stage IV [Recovering/Resolving]
  - Hepatic cancer stage IV [Unknown]

NARRATIVE: CASE EVENT DATE: 20170125
